FAERS Safety Report 8571526-4 (Version None)
Quarter: 2012Q3

REPORT INFORMATION
  Report Type: 
  Country: None (occurrence: None)
  Receive Date: 20120724
  Receipt Date: 20120321
  Transmission Date: 20120928
  Serious: Yes (Hospitalization, Other)
  Sender: FDA-Public Use
  Company Number: 2012MA003090

PATIENT
  Sex: Female
  Weight: 90.7194 kg

DRUGS (20)
  1. METOPROLOL TARTRATE [Concomitant]
  2. VALIUM [Concomitant]
  3. ALPRAZOLAM [Concomitant]
  4. LOVENOX [Concomitant]
  5. TYLENOL [Concomitant]
  6. BUMETANIDE [Concomitant]
  7. TEMAZEPAM [Concomitant]
  8. KADIAN [Suspect]
     Dosage: 200 MG;TID;PO
     Route: 048
     Dates: start: 20090101
  9. OXYCODONE HCL [Suspect]
     Indication: PAIN
     Dosage: 15 MG;Q6H;PO
     Route: 048
     Dates: start: 20090101
  10. CELEXA [Concomitant]
  11. COLACE [Concomitant]
  12. GEODON [Concomitant]
  13. GABAPENTIN [Concomitant]
  14. MULTI-VITAMIN [Concomitant]
  15. WARFARIN SODIUM [Concomitant]
  16. SOMA [Concomitant]
  17. DEPAKOTE [Concomitant]
  18. LEXAPRO [Concomitant]
  19. PROTONIX [Concomitant]
  20. RISPERIDONE [Concomitant]

REACTIONS (7)
  - ANTICOAGULATION DRUG LEVEL BELOW THERAPEUTIC [None]
  - HYPOKALAEMIA [None]
  - UNRESPONSIVE TO STIMULI [None]
  - PNEUMONIA STAPHYLOCOCCAL [None]
  - RESPIRATORY FAILURE [None]
  - PNEUMONIA ASPIRATION [None]
  - MULTIPLE DRUG OVERDOSE [None]
